FAERS Safety Report 10718160 (Version 4)
Quarter: 2015Q1

REPORT INFORMATION
  Report Type: Report from Study
  Country: MX (occurrence: MX)
  Receive Date: 20150118
  Receipt Date: 20150129
  Transmission Date: 20150721
  Serious: Yes (Death, Hospitalization)
  Sender: FDA-Public Use
  Company Number: MX-ASTRAZENECA-2015SE03200

PATIENT
  Age: 23161 Day
  Sex: Male
  Weight: 59 kg

DRUGS (9)
  1. ERITROPOYETIN [Suspect]
     Active Substance: ERYTHROPOIETIN
     Indication: ANAEMIA
     Route: 023
     Dates: start: 20140717
  2. INSULIN [Suspect]
     Active Substance: INSULIN NOS
     Indication: DIABETES MELLITUS
     Route: 023
     Dates: start: 20140717
  3. ALOPURINOL [Concomitant]
     Active Substance: ALLOPURINOL
     Indication: RENAL FAILURE
     Route: 048
     Dates: start: 20140717
  4. PRAVASTATIN [Suspect]
     Active Substance: PRAVASTATIN\PRAVASTATIN SODIUM
     Indication: DYSLIPIDAEMIA
     Route: 048
     Dates: start: 20140717
  5. TICAGRELOR [Suspect]
     Active Substance: TICAGRELOR
     Indication: PERIPHERAL ARTERIAL OCCLUSIVE DISEASE
     Route: 048
     Dates: start: 20140221, end: 20141218
  6. TELMISARTAN. [Suspect]
     Active Substance: TELMISARTAN
     Indication: HYPERTENSION
     Route: 048
     Dates: start: 20140717
  7. FUROSEMIDE. [Concomitant]
     Active Substance: FUROSEMIDE
     Indication: RENAL FAILURE
     Route: 048
     Dates: start: 20140717
  8. NITROGLICERIN [Suspect]
     Active Substance: NITROGLYCERIN
     Indication: ANXIETY
     Route: 059
     Dates: start: 2010
  9. FOLIC ACID. [Concomitant]
     Active Substance: FOLIC ACID
     Indication: RENAL FAILURE
     Route: 048
     Dates: start: 20140717

REACTIONS (1)
  - Chronic kidney disease [Fatal]

NARRATIVE: CASE EVENT DATE: 20141211
